FAERS Safety Report 13188199 (Version 1)
Quarter: 2017Q1

REPORT INFORMATION
  Report Type: Report from Study
  Country: US (occurrence: US)
  Receive Date: 20170206
  Receipt Date: 20170206
  Transmission Date: 20170428
  Serious: No
  Sender: FDA-Public Use
  Company Number: US-AMGEN-USASL2017017960

PATIENT
  Sex: Female

DRUGS (1)
  1. ENBREL [Suspect]
     Active Substance: ETANERCEPT
     Indication: RHEUMATOID ARTHRITIS
     Dosage: 50 MG, QWK
     Route: 065

REACTIONS (6)
  - Nausea [Unknown]
  - Body temperature decreased [Unknown]
  - Viral infection [Unknown]
  - Diarrhoea [Unknown]
  - Dizziness [Unknown]
  - Discomfort [Unknown]

NARRATIVE: CASE EVENT DATE: 20170128
